FAERS Safety Report 5421138-6 (Version None)
Quarter: 2007Q3

REPORT INFORMATION
  Report Type: 
  Country: None (occurrence: None)
  Receive Date: 20070817
  Receipt Date: 20070808
  Transmission Date: 20080115
  Serious: Yes (Hospitalization)
  Sender: FDA-Public Use
  Company Number: 2007BI016767

PATIENT
  Age: 58 Year
  Sex: Female

DRUGS (1)
  1. NATALIZUMAB [Suspect]
     Indication: MULTIPLE SCLEROSIS
     Dosage: 300 MG;QM;IV
     Route: 042
     Dates: start: 20070214

REACTIONS (10)
  - BLOOD PRESSURE DECREASED [None]
  - CSF WHITE BLOOD CELL COUNT INCREASED [None]
  - DIPLOPIA [None]
  - DYSARTHRIA [None]
  - EYELID PTOSIS [None]
  - INTERVERTEBRAL DISC PROTRUSION [None]
  - MIGRAINE [None]
  - MULTIPLE SCLEROSIS [None]
  - PRESYNCOPE [None]
  - PYREXIA [None]
